FAERS Safety Report 15977380 (Version 1)
Quarter: 2019Q1

REPORT INFORMATION
  Report Type: Spontaneous
  Country: BR (occurrence: BR)
  Receive Date: 20190218
  Receipt Date: 20190218
  Transmission Date: 20190418
  Serious: Yes (Other)
  Sender: FDA-Public Use
  Company Number: BR-DSJP-DSE-2019-104839AA

PATIENT

DRUGS (1)
  1. LIXIANA 60MG [Suspect]
     Active Substance: EDOXABAN TOSYLATE
     Indication: THROMBOSIS
     Dosage: 60 MG
     Route: 065

REACTIONS (2)
  - Thrombosis [Unknown]
  - Product administered to patient of inappropriate age [Unknown]
